FAERS Safety Report 26053310 (Version 1)
Quarter: 2025Q4

REPORT INFORMATION
  Report Type: Spontaneous
  Country: CN (occurrence: CN)
  Receive Date: 20251117
  Receipt Date: 20251117
  Transmission Date: 20260117
  Serious: Yes (Hospitalization, Other)
  Sender: BAYER HEALTHCARE PHARMACEUTICALS INC.
  Company Number: CN-BAYER-2025A151012

PATIENT
  Age: 51 Year
  Sex: Male

DRUGS (1)
  1. ULTRAVIST [Suspect]
     Active Substance: IOPROMIDE
     Indication: Imaging procedure
     Dosage: 76.89 G, ONCE
     Route: 013
     Dates: start: 20250911, end: 20250911

REACTIONS (8)
  - Contrast encephalopathy [None]
  - Diplopia [Recovering/Resolving]
  - Dizziness postural [Recovering/Resolving]
  - Vision blurred [Recovering/Resolving]
  - Lacunar infarction [None]
  - Cerebral ischaemia [None]
  - Gait disturbance [None]
  - Cerebral disorder [None]

NARRATIVE: CASE EVENT DATE: 20250911
